FAERS Safety Report 13176458 (Version 1)
Quarter: 2017Q1

REPORT INFORMATION
  Report Type: Spontaneous
  Country: TR (occurrence: TR)
  Receive Date: 20170201
  Receipt Date: 20170201
  Transmission Date: 20170428
  Serious: Yes (Other)
  Sender: FDA-Public Use
  Company Number: TR-MYLANLABS-2017M1005420

PATIENT

DRUGS (3)
  1. PRILOCAINE [Concomitant]
     Active Substance: PRILOCAINE
     Indication: NERVE BLOCK
     Dosage: 2%
     Route: 065
  2. EPINEPHRINE. [Suspect]
     Active Substance: EPINEPHRINE
     Dosage: WITH RING BLOCK; 1:100 000
     Route: 065
  3. EPINEPHRINE. [Suspect]
     Active Substance: EPINEPHRINE
     Indication: PRODUCT USED FOR UNKNOWN INDICATION
     Dosage: 1:100 000 (1 ML ADRENALINE / 100 ML SALINE)
     Route: 065

REACTIONS (1)
  - Implant site necrosis [Unknown]
